FAERS Safety Report 10080218 (Version 1)
Quarter: 2014Q2

REPORT INFORMATION
  Report Type: Spontaneous
  Country: GB (occurrence: GB)
  Receive Date: 20140415
  Receipt Date: 20140415
  Transmission Date: 20141212
  Serious: Yes (Hospitalization)
  Sender: FDA-Public Use
  Company Number: PHHY2014GB042523

PATIENT
  Age: 68 Year
  Sex: Male
  Weight: 91 kg

DRUGS (6)
  1. ALFUZOSIN [Suspect]
     Indication: BENIGN PROSTATIC HYPERPLASIA
     Dosage: 10 MG, QD
     Route: 048
     Dates: start: 20140204, end: 20140312
  2. CO-AMOXICLAV [Suspect]
     Indication: LOWER RESPIRATORY TRACT INFECTION
     Dosage: 625 MG, TID
     Route: 048
     Dates: start: 20140224, end: 20140303
  3. AMLODIPINE [Concomitant]
     Dosage: 10 MG, QD
  4. METFORMIN HYDROCHLORIDE [Concomitant]
     Dosage: 1 G, BID
  5. OMEPRAZOLE [Concomitant]
  6. ASPIRIN [Concomitant]
     Dosage: 75 MG, QD

REACTIONS (4)
  - Jaundice [Recovering/Resolving]
  - Lethargy [Recovering/Resolving]
  - Liver function test abnormal [Recovering/Resolving]
  - Headache [Recovering/Resolving]
